FAERS Safety Report 17144892 (Version 2)
Quarter: 2019Q4

REPORT INFORMATION
  Report Type: Report from Study
  Country: JP (occurrence: JP)
  Receive Date: 20191212
  Receipt Date: 20191218
  Transmission Date: 20200122
  Serious: No
  Sender: FDA-Public Use
  Company Number: JP-EISAI MEDICAL RESEARCH-EC-2019-066657

PATIENT
  Age: 7 Year
  Sex: Female
  Weight: 22.2 kg

DRUGS (18)
  1. PERAMPANEL [Suspect]
     Active Substance: PERAMPANEL
     Route: 048
     Dates: start: 20191203
  2. SIMPLE SYRUP [Concomitant]
  3. ASVERIN (TIPEPIDINE HIBENZATE) [Concomitant]
     Active Substance: TIPEPIDINE HIBENZATE
     Route: 048
  4. PERAMPANEL [Suspect]
     Active Substance: PERAMPANEL
     Route: 048
     Dates: start: 20171120, end: 20171126
  5. PERAMPANEL [Suspect]
     Active Substance: PERAMPANEL
     Dosage: BLINDED THERAPY
     Route: 048
     Dates: start: 20171127, end: 20180304
  6. PERAMPANEL [Suspect]
     Active Substance: PERAMPANEL
     Dosage: OPEN-LABEL: 6 MG/DAY
     Route: 048
     Dates: start: 20180319, end: 20180401
  7. EXCEGRAN [Concomitant]
     Active Substance: ZONISAMIDE
     Route: 048
  8. PERAMPANEL [Suspect]
     Active Substance: PERAMPANEL
     Dosage: BLINDED THERAPY
     Route: 048
     Dates: start: 20171111, end: 20171119
  9. PERAMPANEL [Suspect]
     Active Substance: PERAMPANEL
     Dosage: OPEN-LABEL: 6 MG/DAY OR 8 MG/DAY
     Route: 048
     Dates: start: 20180402, end: 20180415
  10. SODIUM VALPROATE [Concomitant]
     Active Substance: VALPROATE SODIUM
  11. PERAMPANEL [Suspect]
     Active Substance: PERAMPANEL
     Indication: LENNOX-GASTAUT SYNDROME
     Dosage: BLINDED THERAPY
     Route: 048
     Dates: start: 20171030, end: 20171105
  12. PERAMPANEL [Suspect]
     Active Substance: PERAMPANEL
     Dosage: OPEN-LABEL
     Route: 048
     Dates: start: 20190411, end: 20191201
  13. PERAMPANEL [Suspect]
     Active Substance: PERAMPANEL
     Dosage: BLINDED THERAPY
     Route: 048
     Dates: start: 20171106, end: 20171110
  14. PERAMPANEL [Suspect]
     Active Substance: PERAMPANEL
     Dosage: OPEN-LABEL: 4 MG/DAY OR 6 MG/DAY
     Route: 048
     Dates: start: 20180312, end: 20180318
  15. PERAMPANEL [Suspect]
     Active Substance: PERAMPANEL
     Dosage: OPEN-LABEL
     Route: 048
     Dates: start: 20180416, end: 20190410
  16. L-CARTIN FF [Concomitant]
     Active Substance: LEVOCARNITINE
  17. L-CARBOCISTEINE [Concomitant]
     Active Substance: CARBOCYSTEINE
     Route: 048
  18. PERAMPANEL [Suspect]
     Active Substance: PERAMPANEL
     Dosage: OPEN-LABEL: 2 MG/DAY OR 6 MG/DAY
     Route: 048
     Dates: start: 20180305, end: 20180311

REACTIONS (1)
  - Dizziness [Recovered/Resolved]

NARRATIVE: CASE EVENT DATE: 20191202
